FAERS Safety Report 15305025 (Version 1)
Quarter: 2018Q3

REPORT INFORMATION
  Report Type: Spontaneous
  Country: US (occurrence: US)
  Receive Date: 20180810
  Receipt Date: 20180810
  Transmission Date: 20181010
  Serious: No
  Sender: FDA-Public Use
  Company Number: None

PATIENT
  Age: 64 Year
  Sex: Male

DRUGS (4)
  1. BICALUTAMIDE. [Concomitant]
     Active Substance: BICALUTAMIDE
  2. ZYTIGA [Concomitant]
     Active Substance: ABIRATERONE ACETATE
  3. PREDNISONE 5 MG TAB [Suspect]
     Active Substance: PREDNISONE
     Route: 048
  4. ATORVASTATIN [Concomitant]
     Active Substance: ATORVASTATIN

REACTIONS (2)
  - Peripheral swelling [None]
  - Joint swelling [None]

NARRATIVE: CASE EVENT DATE: 20180801
